FAERS Safety Report 19359652 (Version 2)
Quarter: 2021Q3

REPORT INFORMATION
  Report Type: Spontaneous
  Country: US (occurrence: US)
  Receive Date: 20210602
  Receipt Date: 20210802
  Transmission Date: 20211014
  Serious: No
  Sender: FDA-Public Use
  Company Number: US-ASTRAZENECA-2021A483560

PATIENT
  Age: 30065 Day
  Sex: Male

DRUGS (1)
  1. EKLIRA [Suspect]
     Active Substance: ACLIDINIUM BROMIDE
     Route: 055

REACTIONS (5)
  - Tremor [Not Recovered/Not Resolved]
  - Device malfunction [Unknown]
  - Device issue [Unknown]
  - Dyspnoea [Recovering/Resolving]
  - Product dose omission issue [Recovered/Resolved]

NARRATIVE: CASE EVENT DATE: 20210523
